FAERS Safety Report 9467676 (Version 1)
Quarter: 2013Q3

REPORT INFORMATION
  Report Type: Spontaneous
  Country: US (occurrence: None)
  Receive Date: 20130819
  Receipt Date: 20130819
  Transmission Date: 20140515
  Serious: Yes (Hospitalization, Disabling)
  Sender: FDA-Public Use
  Company Number: None

PATIENT
  Age: 33 Year
  Sex: Male
  Weight: 86.18 kg

DRUGS (2)
  1. BACLOFEN 20MG TEVA/IVAX [Suspect]
     Indication: PAIN
     Dosage: 1  THREE TIMES DAILY  TAKEN BY MOUTH
     Route: 048
     Dates: start: 20100701, end: 20120601
  2. BACLOFEN 20MG TEVA/IVAX [Suspect]
     Dosage: 1  THREE TIMES DAILY  TAKEN BY MOUTH
     Route: 048
     Dates: start: 20100701, end: 20120601

REACTIONS (10)
  - Somatoform disorder [None]
  - Depression [None]
  - Withdrawal syndrome [None]
  - Migraine [None]
  - Ataxia [None]
  - Gait disturbance [None]
  - Insomnia [None]
  - Dry mouth [None]
  - Dry eye [None]
  - Impaired work ability [None]
